FAERS Safety Report 20582245 (Version 1)
Quarter: 2022Q1

REPORT INFORMATION
  Report Type: Spontaneous
  Country: US (occurrence: None)
  Receive Date: 20220310
  Receipt Date: 20220310
  Transmission Date: 20220423
  Serious: No
  Sender: FDA-Public Use
  Company Number: None

PATIENT
  Sex: Female

DRUGS (1)
  1. ZIEXTENZO [Suspect]
     Active Substance: PEGFILGRASTIM-BMEZ
     Indication: Ovarian cancer
     Dosage: 6MG Q21D  SC?
     Route: 058
     Dates: start: 202108

REACTIONS (2)
  - Internal haemorrhage [None]
  - Therapy interrupted [None]
